FAERS Safety Report 4472144-X (Version None)
Quarter: 2004Q4

REPORT INFORMATION
  Report Type: 
  Country: None (occurrence: None)
  Receive Date: 20041007
  Receipt Date: 20040928
  Transmission Date: 20050328
  Serious: No
  Sender: FDA-Public Use
  Company Number: 04H-167-0275028-00

PATIENT
  Sex: Female

DRUGS (7)
  1. LEUCOVORIN CALCIUM [Suspect]
     Indication: CHEMOTHERAPY
     Dosage: 30 MG, ONCE, INTRAVENOUS BOLUS
     Route: 040
  2. OXALIPLATIN [Suspect]
     Indication: CHEMOTHERAPY
     Dosage: 85 MG/M2, ONCE OVER 2 HOURS, INTRAVENOUS
     Route: 042
  3. FLUOROURACIL [Suspect]
     Indication: CHEMOTHERAPY
     Dosage: 370 MG/M2, ONCE, INTRAVENOUS
     Route: 042
  4. ONDANSETRON [Concomitant]
  5. DEXAMETHASONE [Concomitant]
  6. METOCLOPRAMIDE [Concomitant]
  7. GLUCOSE [Concomitant]

REACTIONS (1)
  - HYPOMAGNESAEMIA [None]
